FAERS Safety Report 9210915 (Version 1)
Quarter: 2013Q2

REPORT INFORMATION
  Report Type: Report from Study
  Country: TR (occurrence: TR)
  Receive Date: 20130404
  Receipt Date: 20130404
  Transmission Date: 20140414
  Serious: Yes (Hospitalization)
  Sender: FDA-Public Use
  Company Number: TR-US-EMD SERONO, INC.-7202893

PATIENT
  Sex: Female
  Weight: 66 kg

DRUGS (2)
  1. REBIF [Suspect]
     Indication: MULTIPLE SCLEROSIS
     Route: 058
     Dates: start: 201005
  2. LUSTRAL [Suspect]
     Indication: DEPRESSION
     Route: 048
     Dates: start: 2011

REACTIONS (3)
  - Urinary tract infection [Recovering/Resolving]
  - Hypoaesthesia [Unknown]
  - Gait disturbance [Unknown]
